FAERS Safety Report 16711743 (Version 1)
Quarter: 2019Q3

REPORT INFORMATION
  Report Type: Spontaneous
  Country: US (occurrence: US)
  Receive Date: 20190816
  Receipt Date: 20190816
  Transmission Date: 20191004
  Serious: No
  Sender: FDA-Public Use
  Company Number: US-SA-2019SA224522

PATIENT
  Age: 76 Year
  Sex: Male

DRUGS (1)
  1. PRALUENT [Suspect]
     Active Substance: ALIROCUMAB
     Indication: BLOOD CHOLESTEROL
     Dosage: 75 MG, QOW
     Dates: start: 20190517, end: 20190809

REACTIONS (6)
  - Ataxia [Unknown]
  - Muscle discomfort [Recovering/Resolving]
  - Asthenia [Recovering/Resolving]
  - Balance disorder [Unknown]
  - Musculoskeletal discomfort [Recovering/Resolving]
  - Condition aggravated [Unknown]

NARRATIVE: CASE EVENT DATE: 2019
